FAERS Safety Report 5070179-X (Version None)
Quarter: 2006Q3

REPORT INFORMATION
  Report Type: 
  Country: None (occurrence: None)
  Receive Date: 20060803
  Receipt Date: 20060712
  Transmission Date: 20061208
  Serious: Yes (Hospitalization)
  Sender: FDA-Public Use
  Company Number: ES-BOEHRINGER INGELHEIM PHARMACEUTICALS, INC.-2006-ES-00264ES

PATIENT
  Sex: Male
  Weight: 59 kg

DRUGS (4)
  1. APTIVUS [Suspect]
     Indication: HIV INFECTION
     Dosage: TIPRANAVIR 1000 MG + RITONAVIR 400 MG
     Route: 048
     Dates: start: 20060208, end: 20060628
  2. VIDEX [Concomitant]
     Indication: HIV INFECTION
     Route: 048
     Dates: start: 19981230, end: 20060628
  3. ZERIT [Concomitant]
     Indication: HIV INFECTION
     Route: 048
     Dates: start: 19970421, end: 20060628
  4. VIREAD [Concomitant]
     Indication: HIV INFECTION
     Route: 048
     Dates: start: 20010601, end: 20060628

REACTIONS (1)
  - VARICES OESOPHAGEAL [None]
